FAERS Safety Report 9459240 (Version 1)
Quarter: 2013Q3

REPORT INFORMATION
  Report Type: Spontaneous
  Country: US (occurrence: US)
  Receive Date: 20130814
  Receipt Date: 20130814
  Transmission Date: 20140515
  Serious: Yes (Other)
  Sender: FDA-Public Use
  Company Number: US-TEVA-425146USA

PATIENT
  Age: 26 Year
  Sex: Female
  Weight: 108.96 kg

DRUGS (4)
  1. PARAGARD 380A [Suspect]
     Indication: CONTRACEPTION
     Route: 015
     Dates: start: 20130425, end: 20130726
  2. ZOLOFT [Concomitant]
     Indication: DEPRESSION
  3. XANAX [Concomitant]
     Indication: ANXIETY
  4. ZANAFLEX [Concomitant]
     Indication: MUSCLE RELAXANT THERAPY

REACTIONS (4)
  - Embedded device [Recovered/Resolved]
  - Pregnancy with contraceptive device [Unknown]
  - Drug ineffective [Unknown]
  - Uterine haemorrhage [Unknown]
